FAERS Safety Report 12868052 (Version 2)
Quarter: 2017Q1

REPORT INFORMATION
  Report Type: Spontaneous
  Country: US (occurrence: US)
  Receive Date: 20161020
  Receipt Date: 20170124
  Transmission Date: 20170428
  Serious: No
  Sender: FDA-Public Use
  Company Number: US-AMGEN-USASP2016120281

PATIENT
  Sex: Male

DRUGS (1)
  1. REPATHA [Suspect]
     Active Substance: EVOLOCUMAB
     Indication: DRUG INTOLERANCE
     Dosage: 140 MG, Q2WK
     Route: 065
     Dates: start: 20160421

REACTIONS (4)
  - Mobility decreased [Unknown]
  - Blood creatine phosphokinase increased [Unknown]
  - Therapeutic response unexpected [Unknown]
  - Myalgia [Not Recovered/Not Resolved]

NARRATIVE: CASE EVENT DATE: 2016
